FAERS Safety Report 9290041 (Version 1)
Quarter: 2013Q2

REPORT INFORMATION
  Report Type: Spontaneous
  Country: FR (occurrence: None)
  Receive Date: 20130510
  Receipt Date: 20130510
  Transmission Date: 20140414
  Serious: Yes (Hospitalization)
  Sender: FDA-Public Use
  Company Number: 2013-001377

PATIENT
  Age: 67 Year
  Sex: Female

DRUGS (1)
  1. ACTONEL [Suspect]
     Route: 048
     Dates: start: 2008, end: 201212

REACTIONS (1)
  - Atypical femur fracture [None]
